FAERS Safety Report 15429406 (Version 1)
Quarter: 2018Q4

REPORT INFORMATION
  Report Type: Spontaneous
  Country: DE (occurrence: DE)
  Receive Date: 20180926
  Receipt Date: 20180926
  Transmission Date: 20190204
  Serious: Yes (Hospitalization, Other)
  Sender: FDA-Public Use
  Company Number: PHHY2018DE104141

PATIENT
  Age: 83 Year
  Sex: Female
  Weight: 48 kg

DRUGS (9)
  1. LEVETIRACETAM. [Suspect]
     Active Substance: LEVETIRACETAM
     Indication: CEREBRAL HAEMORRHAGE
     Dosage: 500 MG, Q12H (500-0-500 )
     Route: 042
     Dates: start: 20180702, end: 20180709
  2. NAROPIN [Suspect]
     Active Substance: ROPIVACAINE HYDROCHLORIDE
     Dosage: UNK (TRIAM UND NAROPIN 20 INJ 1 X O,5 UND 2MG 10 ML)
     Route: 008
  3. ACIDUM FOLICUM [Concomitant]
     Active Substance: FOLIC ACID
     Indication: SCIATICA
     Dosage: 1 AMPULLE PRO TAG
     Route: 014
     Dates: start: 20180625
  4. LEVETIRACETAM. [Suspect]
     Active Substance: LEVETIRACETAM
     Dosage: 500 MG, UNK (500-0-500AB DEM 29.08. AUSSCHLEICHEN VON KEPPRA)
     Route: 048
     Dates: start: 20180816
  5. GABAPENTIN. [Suspect]
     Active Substance: GABAPENTIN
     Indication: NEURALGIA
     Dosage: 500 UNK, UNK
     Route: 048
  6. COTRIM FORTE [Suspect]
     Active Substance: SULFAMETHOXAZOLE\TRIMETHOPRIM
     Indication: PRODUCT USED FOR UNKNOWN INDICATION
     Dosage: UNK
     Route: 048
  7. TRIAM (TRIAMCINOLONE) [Suspect]
     Active Substance: TRIAMCINOLONE
     Indication: SCIATICA
     Dosage: UNK (TRIAM UND NAROPIN 20 INJ 1 X O,5 UND 2MG 10 ML)
     Route: 008
  8. NOVALGIN (METAMIZOLE SODIUM) [Suspect]
     Active Substance: METAMIZOLE SODIUM
     Indication: SCIATICA
     Dosage: UNK (NICHT IN HOHE BEKANNT)
     Route: 042
  9. LORAZEPAM. [Suspect]
     Active Substance: LORAZEPAM
     Indication: PRODUCT USED FOR UNKNOWN INDICATION
     Dosage: UNK
     Route: 065

REACTIONS (9)
  - Platelet count decreased [Unknown]
  - Unevaluable event [Unknown]
  - Dysphagia [Recovering/Resolving]
  - Gamma-glutamyltransferase increased [Unknown]
  - Somnolence [Recovered/Resolved with Sequelae]
  - Loss of consciousness [Recovering/Resolving]
  - Cerebral haemorrhage [Recovered/Resolved with Sequelae]
  - Epilepsy [Unknown]
  - Sopor [Recovered/Resolved with Sequelae]

NARRATIVE: CASE EVENT DATE: 20180622
